FAERS Safety Report 5010527-X (Version None)
Quarter: 2006Q2

REPORT INFORMATION
  Report Type: 
  Country: None (occurrence: None)
  Receive Date: 20060523
  Receipt Date: 20060513
  Transmission Date: 20061013
  Serious: Yes (Hospitalization, Disabling, Other)
  Sender: FDA-Public Use
  Company Number: 2006016557

PATIENT
  Sex: Male
  Weight: 88.4514 kg

DRUGS (3)
  1. DILANTIN KAPSEAL [Suspect]
     Indication: CONVULSION
     Dosage: 600 MG (200 MG, 3 IN 1 D), ORAL
     Route: 048
     Dates: start: 19930101
  2. DEPAKOTE [Suspect]
     Indication: CONVULSION
  3. PHENYTOIN [Suspect]
     Indication: CONVULSION

REACTIONS (12)
  - ANTICONVULSANT TOXICITY [None]
  - BODY HEIGHT DECREASED [None]
  - BONE DISORDER [None]
  - ERYTHEMA [None]
  - FALL [None]
  - OEDEMA PERIPHERAL [None]
  - OSTEOPENIA [None]
  - OSTEOPOROSIS [None]
  - PHARMACEUTICAL PRODUCT COMPLAINT [None]
  - THERAPEUTIC RESPONSE DECREASED [None]
  - THERAPEUTIC RESPONSE UNEXPECTED WITH DRUG SUBSTITUTION [None]
  - WEIGHT INCREASED [None]
